FAERS Safety Report 9507387 (Version 1)
Quarter: 2013Q3

REPORT INFORMATION
  Report Type: Spontaneous
  Country: US (occurrence: None)
  Receive Date: 20130906
  Receipt Date: 20130906
  Transmission Date: 20140515
  Serious: Yes (Death)
  Sender: FDA-Public Use
  Company Number: None

PATIENT
  Sex: Male

DRUGS (6)
  1. HYDROXYCHLOROQUINE [Suspect]
     Indication: RHEUMATOID ARTHRITIS
     Dosage: INITIALLY 2/12 @ QD DOSE
     Route: 048
     Dates: start: 201202
  2. ACYCLOVIR [Concomitant]
  3. PREDNISONE [Concomitant]
  4. CITALOPRAM [Concomitant]
  5. CRESTOR [Concomitant]
  6. BYSTOLIC [Concomitant]

REACTIONS (6)
  - Gun shot wound [None]
  - Hypersensitivity [None]
  - Completed suicide [None]
  - Head injury [None]
  - Overdose [None]
  - Toxicity to various agents [None]
